FAERS Safety Report 18811326 (Version 1)
Quarter: 2021Q1

REPORT INFORMATION
  Report Type: Spontaneous
  Country: US (occurrence: US)
  Receive Date: 20210129
  Receipt Date: 20210129
  Transmission Date: 20210419
  Serious: No
  Sender: FDA-Public Use
  Company Number: US-RVL_PHARMACEUTICALS-USA-POI0573202000524

PATIENT
  Age: 21 Year
  Sex: Female

DRUGS (1)
  1. UPNEEQ [Suspect]
     Active Substance: OXYMETAZOLINE HYDROCHLORIDE
     Indication: PRESCRIPTION DRUG USED WITHOUT A PRESCRIPTION
     Dosage: OU
     Route: 047
     Dates: start: 20200917, end: 20200917

REACTIONS (3)
  - Off label use [Recovered/Resolved]
  - Eye pain [Recovered/Resolved]
  - Prescription drug used without a prescription [Recovered/Resolved]

NARRATIVE: CASE EVENT DATE: 20200917
